FAERS Safety Report 8249766-3 (Version None)
Quarter: 2012Q2

REPORT INFORMATION
  Report Type: 
  Country: None (occurrence: None)
  Receive Date: 20120402
  Receipt Date: 20120322
  Transmission Date: 20120825
  Serious: Yes (Other)
  Sender: FDA-Public Use
  Company Number: PHEH2011US07974

PATIENT
  Sex: Female

DRUGS (2)
  1. EXJADE [Suspect]
     Indication: SICKLE CELL ANAEMIA
     Dosage: 2500 MG, QD
     Route: 048
  2. EXJADE [Suspect]
     Dosage: 2500 MG QD
     Route: 048

REACTIONS (3)
  - ROAD TRAFFIC ACCIDENT [None]
  - WEIGHT DECREASED [None]
  - DEAFNESS [None]
